FAERS Safety Report 7939101-X (Version None)
Quarter: 2011Q4

REPORT INFORMATION
  Report Type: 
  Country: None (occurrence: None)
  Receive Date: 20111124
  Receipt Date: 20111114
  Transmission Date: 20120403
  Serious: Yes (Death, Hospitalization)
  Sender: FDA-Public Use
  Company Number: DE-ROCHE-1008208

PATIENT
  Sex: Male
  Weight: 107 kg

DRUGS (6)
  1. LEUCOVORIN CALCIUM [Concomitant]
     Indication: COLORECTAL CANCER
     Route: 011
     Dates: start: 20110822
  2. FLUOROURACIL [Concomitant]
     Indication: COLORECTAL CANCER
     Route: 042
     Dates: start: 20110822
  3. DEXAMETHASON [Concomitant]
     Route: 042
     Dates: start: 20110822
  4. OXALIPLATIN [Concomitant]
     Indication: COLORECTAL CANCER
     Route: 042
     Dates: start: 20110822
  5. ONDANSETRON [Concomitant]
     Route: 042
     Dates: start: 20110822
  6. AVASTIN [Suspect]
     Indication: COLORECTAL CANCER
     Route: 042
     Dates: start: 20110822

REACTIONS (2)
  - MYOCARDIAL ISCHAEMIA [None]
  - UPPER GASTROINTESTINAL HAEMORRHAGE [None]
